FAERS Safety Report 17895375 (Version 2)
Quarter: 2020Q3

REPORT INFORMATION
  Report Type: Report from Study
  Country: US (occurrence: US)
  Receive Date: 20200615
  Receipt Date: 20200803
  Transmission Date: 20201103
  Serious: Yes (Hospitalization)
  Sender: FDA-Public Use
  Company Number: US-DSJP-DSU-2019-151974

PATIENT

DRUGS (1)
  1. PEXIDARTINIB [Suspect]
     Active Substance: PEXIDARTINIB
     Indication: SYNOVITIS
     Dosage: 200 MG, BID
     Route: 048
     Dates: start: 20191220

REACTIONS (14)
  - Hypertensive crisis [Recovered/Resolved]
  - COVID-19 [Recovering/Resolving]
  - Diplopia [Unknown]
  - Hyperproteinaemia [Recovering/Resolving]
  - Visual impairment [Unknown]
  - Cognitive disorder [Unknown]
  - Blood alkaline phosphatase increased [Not Recovered/Not Resolved]
  - Blood chloride increased [Unknown]
  - Autoimmune thyroiditis [Unknown]
  - Confusional state [Unknown]
  - Off label use [Unknown]
  - Amnesia [Unknown]
  - Thyroid hormones increased [Unknown]
  - Vision blurred [Recovered/Resolved]

NARRATIVE: CASE EVENT DATE: 201912
